FAERS Safety Report 13389988 (Version 2)
Quarter: 2017Q2

REPORT INFORMATION
  Report Type: Report from Study
  Country: US (occurrence: US)
  Receive Date: 20170331
  Receipt Date: 20170410
  Transmission Date: 20170830
  Serious: Yes (Other)
  Sender: FDA-Public Use
  Company Number: US-ASTRAZENECA-2016SE71333

PATIENT
  Sex: Male

DRUGS (17)
  1. LEUPROLIDE [Concomitant]
     Active Substance: LEUPROLIDE
     Dosage: UNKNOWN
     Route: 030
  2. ENZALUTAMIDE [Concomitant]
     Active Substance: ENZALUTAMIDE
     Route: 065
     Dates: start: 20150224
  3. XGEVA [Concomitant]
     Active Substance: DENOSUMAB
     Route: 058
     Dates: start: 20130110
  4. VITAMIN E [Concomitant]
     Active Substance: .ALPHA.-TOCOPHEROL
     Dosage: 1000UNIT CAPSULE, ONE DAILY
     Route: 048
  5. LEUPROLIDE [Concomitant]
     Active Substance: LEUPROLIDE
     Dosage: 7.5MG UNKNOWN
     Route: 065
     Dates: start: 20130110
  6. ABIRATERONE [Concomitant]
     Active Substance: ABIRATERONE
     Route: 065
     Dates: start: 20140815
  7. VITAMIN D3 [Concomitant]
     Active Substance: CHOLECALCIFEROL
     Route: 048
  8. CIALIS [Concomitant]
     Active Substance: TADALAFIL
  9. OLAPARIB [Suspect]
     Active Substance: OLAPARIB
     Indication: HORMONE-REFRACTORY PROSTATE CANCER
     Dosage: INCREASED TO 75PERCENT DOSE
     Route: 048
     Dates: start: 20170215
  10. OLAPARIB [Suspect]
     Active Substance: OLAPARIB
     Indication: HORMONE-REFRACTORY PROSTATE CANCER
     Dosage: RESUMED AT 50PERCENT DOSE
     Route: 048
     Dates: start: 20170201
  11. PREDNISONE. [Concomitant]
     Active Substance: PREDNISONE
  12. CASODEX [Suspect]
     Active Substance: BICALUTAMIDE
     Indication: HORMONE-REFRACTORY PROSTATE CANCER
     Route: 048
     Dates: start: 20121226
  13. LEUPROLIDE [Concomitant]
     Active Substance: LEUPROLIDE
     Dosage: 30MG EVERY FOUR MONTHS UNKNOWN
     Route: 065
     Dates: start: 20130205
  14. XGEVA [Concomitant]
     Active Substance: DENOSUMAB
     Dosage: 60MG/ML
     Route: 058
  15. HYDROCHLOROTHIAZIDE. [Concomitant]
     Active Substance: HYDROCHLOROTHIAZIDE
  16. OLAPARIB [Suspect]
     Active Substance: OLAPARIB
     Indication: HORMONE-REFRACTORY PROSTATE CANCER
     Route: 048
     Dates: start: 20160224, end: 20170118
  17. OLAPARIB [Suspect]
     Active Substance: OLAPARIB
     Indication: HORMONE-REFRACTORY PROSTATE CANCER
     Route: 048

REACTIONS (9)
  - Metastases to bone [Unknown]
  - Metastases to lung [Unknown]
  - Leukopenia [Recovered/Resolved]
  - Prostate cancer metastatic [Unknown]
  - Metastases to liver [Unknown]
  - Malignant neoplasm progression [Unknown]
  - Anaemia [Recovered/Resolved]
  - Product use in unapproved indication [Unknown]
  - Off label use [Unknown]
